FAERS Safety Report 12970413 (Version 1)
Quarter: 2016Q4

REPORT INFORMATION
  Report Type: Report from Study
  Country: DE (occurrence: DE)
  Receive Date: 20161123
  Receipt Date: 20161123
  Transmission Date: 20170207
  Serious: Yes (Hospitalization)
  Sender: FDA-Public Use
  Company Number: DE-ALLERGAN-1677600US

PATIENT
  Age: 52 Year
  Sex: Female

DRUGS (5)
  1. DIPIPERON [Concomitant]
     Active Substance: PIPAMPERONE
     Indication: PRODUCT USED FOR UNKNOWN INDICATION
     Dosage: 10 MG, UNK
     Route: 048
     Dates: start: 20160419, end: 20160424
  2. DIPIPERON [Concomitant]
     Active Substance: PIPAMPERONE
     Dosage: 30 MG, UNK
     Route: 048
     Dates: start: 20160412, end: 20160418
  3. DIPIPERON [Concomitant]
     Active Substance: PIPAMPERONE
     Dosage: 40 MG, UNK
     Route: 048
     Dates: start: 20160409, end: 20160411
  4. CITALOPRAM HYDROBROMIDE UNK [Suspect]
     Active Substance: CITALOPRAM HYDROBROMIDE
     Indication: PRODUCT USED FOR UNKNOWN INDICATION
     Dosage: 20 MG, QD
     Route: 048
     Dates: start: 20160408, end: 20160421
  5. CITALOPRAM HYDROBROMIDE UNK [Suspect]
     Active Substance: CITALOPRAM HYDROBROMIDE
     Dosage: 10 MG, UNK
     Route: 048
     Dates: start: 20160401, end: 20160407

REACTIONS (1)
  - Alopecia [Recovered/Resolved]

NARRATIVE: CASE EVENT DATE: 20160415
